FAERS Safety Report 19469644 (Version 3)
Quarter: 2021Q3

REPORT INFORMATION
  Report Type: Spontaneous
  Country: GB (occurrence: GB)
  Receive Date: 20210628
  Receipt Date: 20210826
  Transmission Date: 20211014
  Serious: Yes (Hospitalization, Other)
  Sender: FDA-Public Use
  Company Number: GB-MYLANLABS-2021M1014223

PATIENT
  Age: 55 Year
  Sex: Female

DRUGS (4)
  1. PRIVIGEN [Concomitant]
     Active Substance: HUMAN IMMUNOGLOBULIN G
     Dosage: UNK
     Dates: start: 202012
  2. CLOZARIL [Suspect]
     Active Substance: CLOZAPINE
     Indication: SCHIZOPHRENIA
     Dosage: UNK
     Route: 048
     Dates: start: 20010701, end: 20210326
  3. CLOZARIL [Suspect]
     Active Substance: CLOZAPINE
     Dosage: 625 MILLIGRAM
     Dates: start: 1999
  4. QUININE [Suspect]
     Active Substance: QUININE
     Indication: PRODUCT USED FOR UNKNOWN INDICATION
     Dosage: UNK

REACTIONS (9)
  - White blood cell count decreased [Recovered/Resolved]
  - Extrapyramidal disorder [Unknown]
  - Haemoglobin decreased [Not Recovered/Not Resolved]
  - Liver function test abnormal [Recovered/Resolved]
  - Hospitalisation [Unknown]
  - Neutropenia [Recovered/Resolved]
  - Schizophrenia [Unknown]
  - Electrocardiogram QT prolonged [Unknown]
  - Agranulocytosis [Unknown]

NARRATIVE: CASE EVENT DATE: 20210304
